FAERS Safety Report 11823468 (Version 1)
Quarter: 2015Q4

REPORT INFORMATION
  Report Type: Spontaneous
  Country: US (occurrence: US)
  Receive Date: 20151210
  Receipt Date: 20151210
  Transmission Date: 20160305
  Serious: Yes (Other)
  Sender: FDA-Public Use
  Company Number: PHHY2015US160044

PATIENT
  Age: 72 Year
  Sex: Female

DRUGS (2)
  1. EVEROLIMUS [Suspect]
     Active Substance: EVEROLIMUS
     Indication: RENAL CELL CARCINOMA
     Route: 065
  2. PAZOPANIB [Suspect]
     Active Substance: PAZOPANIB
     Indication: RENAL CELL CARCINOMA
     Route: 065

REACTIONS (2)
  - Erythema multiforme [Unknown]
  - Drug intolerance [Unknown]
